FAERS Safety Report 8505520-6 (Version None)
Quarter: 2012Q3

REPORT INFORMATION
  Report Type: 
  Country: None (occurrence: None)
  Receive Date: 20120703
  Receipt Date: 20120626
  Transmission Date: 20120928
  Serious: Yes (Death, Other)
  Sender: FDA-Public Use
  Company Number: 2012SP019329

PATIENT
  Age: 70 Year
  Sex: Male

DRUGS (5)
  1. MIRTAZAPINE [Suspect]
     Indication: DEPRESSION
     Dosage: 15 MG;QD;PO ; 7.5 MG;QD;PO
     Route: 048
     Dates: start: 20100903, end: 20100918
  2. MIRTAZAPINE [Suspect]
     Indication: DEPRESSION
     Dosage: 15 MG;QD;PO ; 7.5 MG;QD;PO
     Route: 048
     Dates: start: 20090907, end: 20090914
  3. BROTIZOLAM [Concomitant]
  4. ALPRAZOLAM [Concomitant]
  5. DULOXETINE HYDROCHLORIDE [Concomitant]

REACTIONS (11)
  - DELIRIUM [None]
  - ABNORMAL BEHAVIOUR [None]
  - INSOMNIA [None]
  - FEELING ABNORMAL [None]
  - DELUSION [None]
  - ARRHYTHMIA [None]
  - ATRIAL FIBRILLATION [None]
  - PNEUMONIA [None]
  - TINNITUS [None]
  - HALLUCINATION [None]
  - SOMATOFORM DISORDER [None]
